FAERS Safety Report 16600307 (Version 2)
Quarter: 2019Q3

REPORT INFORMATION
  Report Type: Spontaneous
  Country: NL (occurrence: NL)
  Receive Date: 20190720
  Receipt Date: 20190723
  Transmission Date: 20191004
  Serious: Yes (Hospitalization)
  Sender: FDA-Public Use
  Company Number: NL-AXELLIA-002591

PATIENT
  Age: 77 Year
  Sex: Female
  Weight: 92 kg

DRUGS (13)
  1. TEMAZEPAM. [Concomitant]
     Active Substance: TEMAZEPAM
     Dosage: ZN 1DD10MG
     Dates: start: 20190217
  2. OXYCODONE [Concomitant]
     Active Substance: OXYCODONE
     Dosage: ZN 6DD5MG
     Dates: start: 20190219
  3. PREGABALIN. [Concomitant]
     Active Substance: PREGABALIN
     Dosage: 1DD75MG, STRENGTH: 75 MG
     Dates: start: 20190221
  4. FRAXIPARIN [Concomitant]
     Active Substance: NADROPARIN CALCIUM
     Dosage: 1DD2850IE, STRENGTH: 9500 IE / ML
     Dates: start: 20190216
  5. PANTOPRAZOLE [Concomitant]
     Active Substance: PANTOPRAZOLE
     Dosage: 1DD40MG, TABLET MSR
     Dates: start: 20190314
  6. VANCOMYCIN [Suspect]
     Active Substance: VANCOMYCIN
     Indication: WOUND
     Dosage: STRENGTH 1000 MG , 2DD1000MG
     Dates: start: 20190313, end: 20190406
  7. METAMIZOLE SODIUM [Concomitant]
     Active Substance: METAMIZOLE SODIUM
     Dosage: 4DD1000MG, STRENGTH: 500 MG / ML
     Dates: start: 20190313
  8. OXYCODON MGA [Concomitant]
     Dosage: 2DD5MG, DD5MG
     Dates: start: 20190219
  9. IPRAXA [Concomitant]
     Dosage: ZN 3DD2ML, STRENGTH: 250 G / ML
     Dates: start: 20190221
  10. PARACETAMOL [Concomitant]
     Active Substance: ACETAMINOPHEN
     Dosage: 4DD1000MG
     Dates: start: 20190304
  11. METOPROLOL. [Concomitant]
     Active Substance: METOPROLOL
     Dosage: 1DD25MG
     Dates: start: 20190216
  12. PSYLLIUMVEZELS [Concomitant]
     Dosage: 3 DD 1 SACHET, GRANULES
     Dates: start: 20190311
  13. GRANISETRON/GRANISETRON HYDROCHLORIDE [Concomitant]
     Dosage: ZN 2DD1MG
     Dates: start: 20190219

REACTIONS (4)
  - Oedema [Recovered/Resolved]
  - Rash erythematous [Recovered/Resolved]
  - Pyrexia [Recovered/Resolved]
  - Rash pruritic [Recovered/Resolved]

NARRATIVE: CASE EVENT DATE: 20190406
